FAERS Safety Report 18160240 (Version 2)
Quarter: 2023Q4

REPORT INFORMATION
  Report Type: Spontaneous
  Country: MX (occurrence: MX)
  Receive Date: 20200818
  Receipt Date: 20231202
  Transmission Date: 20240109
  Serious: Yes (Death, Hospitalization, Other)
  Sender: FDA-Public Use
  Company Number: MX-BAYER-2020-170655

PATIENT
  Age: 12 Month
  Sex: Male

DRUGS (5)
  1. CIPROFLOXACIN [Suspect]
     Active Substance: CIPROFLOXACIN
     Indication: Gastroenteritis salmonella
     Dosage: UNK
  2. CEFTRIAXONE [Suspect]
     Active Substance: CEFTRIAXONE\CEFTRIAXONE SODIUM
     Dosage: UNK
  3. MEROPENEM [Suspect]
     Active Substance: MEROPENEM
     Dosage: UNK
  4. TRIMETHOPRIM [Suspect]
     Active Substance: TRIMETHOPRIM
  5. VANCOMYCIN [Suspect]
     Active Substance: VANCOMYCIN
     Dosage: UNK

REACTIONS (9)
  - Multiple organ dysfunction syndrome [Fatal]
  - Acute kidney injury [None]
  - Enterococcal sepsis [None]
  - Pneumonia [None]
  - Renal tubular necrosis [None]
  - Haemophagocytic lymphohistiocytosis [None]
  - Respiratory distress [None]
  - Off label use [None]
  - Product use issue [None]
